FAERS Safety Report 5259782-1 (Version None)
Quarter: 2007Q1

REPORT INFORMATION
  Report Type: 
  Country: None (occurrence: None)
  Receive Date: 20070309
  Receipt Date: 20070227
  Transmission Date: 20070707
  Serious: Yes (Other)
  Sender: FDA-Public Use
  Company Number: CA-JNJFOC-20070206473

PATIENT
  Age: 19 Year
  Sex: Female

DRUGS (8)
  1. INFLIXIMAB [Suspect]
     Indication: JUVENILE ARTHRITIS
     Route: 042
  2. ADALIMUMAB [Concomitant]
  3. PREDNISONE [Concomitant]
  4. NAPROXEN [Concomitant]
  5. LEFLUNOMIDE [Concomitant]
  6. LEVONORGESTREL [Concomitant]
  7. ETHINYL ESTRADIOL TAB [Concomitant]
  8. VITAMINS [Concomitant]

REACTIONS (2)
  - LUPUS-LIKE SYNDROME [None]
  - PUSTULAR PSORIASIS [None]
